FAERS Safety Report 6686511-7 (Version None)
Quarter: 2010Q2

REPORT INFORMATION
  Report Type: 
  Country: None (occurrence: None)
  Receive Date: 20100419
  Receipt Date: 20100409
  Transmission Date: 20101027
  Serious: Yes (Other)
  Sender: FDA-Public Use
  Company Number: BR-ROCHE-696544

PATIENT
  Age: 35 Year
  Sex: Female

DRUGS (4)
  1. HERCEPTIN [Suspect]
     Dosage: FORM: INFUSION
     Route: 065
     Dates: end: 20100217
  2. DOXORUBICIN HCL [Concomitant]
  3. CYCLOPHOSPHAMIDE [Concomitant]
  4. TAXOTERE [Concomitant]

REACTIONS (3)
  - EJECTION FRACTION DECREASED [None]
  - PERICARDIAL EFFUSION [None]
  - TACHYCARDIA [None]
